FAERS Safety Report 8874248 (Version 3)
Quarter: 2013Q1

REPORT INFORMATION
  Report Type: Spontaneous
  Country: US (occurrence: US)
  Receive Date: 20121031
  Receipt Date: 20130206
  Transmission Date: 20140127
  Serious: No
  Sender: FDA-Public Use
  Company Number: US-009507513-1210USA009952

PATIENT
  Age: 26 Year
  Sex: Female

DRUGS (3)
  1. IMPLANON [Suspect]
     Indication: CONTRACEPTION
     Dosage: UNK
     Dates: start: 20121018, end: 20121018
  2. IMPLANON [Suspect]
     Dosage: UNK
     Dates: start: 20121018
  3. IMPLANON [Suspect]
     Dosage: UNK
     Dates: end: 20121018

REACTIONS (2)
  - Complication of device insertion [Unknown]
  - No adverse event [Unknown]
